FAERS Safety Report 8847861 (Version 2)
Quarter: 2012Q4

REPORT INFORMATION
  Report Type: 
  Country: US (occurrence: US)
  Receive Date: 20121018
  Receipt Date: 20121102
  Transmission Date: 20130627
  Serious: Yes (Life-Threatening, Hospitalization, Disabling, Other)
  Sender: FDA-Public Use
  Company Number: US-009507513-1210USA003956

PATIENT

DRUGS (1)
  1. FOSAMAX [Suspect]
     Dosage: UNK
     Route: 048
     Dates: start: 1999, end: 200603

REACTIONS (4)
  - Femur fracture [Unknown]
  - Surgery [Unknown]
  - Femur fracture [Unknown]
  - Surgery [Unknown]
